FAERS Safety Report 4437269-3 (Version None)
Quarter: 2004Q3

REPORT INFORMATION
  Report Type: 
  Country: None (occurrence: None)
  Receive Date: 20040728
  Receipt Date: 20040413
  Transmission Date: 20050211
  Serious: No
  Sender: FDA-Public Use
  Company Number: WAES 0403USA01481

PATIENT
  Age: 49 Year
  Sex: Male
  Weight: 81.6475 kg

DRUGS (31)
  1. EMEND [Suspect]
     Dosage: SEE IMAGE
     Route: 048
     Dates: start: 20031029, end: 20031029
  2. EMEND [Suspect]
     Dosage: SEE IMAGE
     Route: 048
     Dates: start: 20031030, end: 20031031
  3. EMEND [Suspect]
     Dosage: SEE IMAGE
     Route: 048
     Dates: start: 20031202, end: 20031204
  4. EMEND [Suspect]
     Dosage: SEE IMAGE
     Route: 048
     Dates: start: 20031219, end: 20031219
  5. EMEND [Suspect]
     Dosage: SEE IMAGE
     Route: 048
     Dates: start: 20031220, end: 20031222
  6. EMEND [Suspect]
     Dosage: SEE IMAGE
     Route: 048
     Dates: start: 20040104, end: 20040104
  7. EMEND [Suspect]
     Dosage: SEE IMAGE
     Route: 048
     Dates: start: 20040105, end: 20040107
  8. EMEND [Suspect]
     Dosage: SEE IMAGE
     Route: 048
     Dates: start: 20031123
  9. EMEND [Suspect]
     Dosage: SEE IMAGE
     Route: 048
     Dates: start: 20031201
  10. ATIVAN [Concomitant]
  11. BENADRYL [Concomitant]
  12. COLACE [Concomitant]
  13. COMPAZINE [Concomitant]
  14. DECADRON [Concomitant]
  15. DULCOLAX [Concomitant]
  16. FIBERCON [Concomitant]
  17. LEVAQUIN [Concomitant]
  18. LEXAPRO [Concomitant]
  19. LORTAB [Concomitant]
  20. LOVENOX [Concomitant]
  21. ZOFRAN [Concomitant]
  22. ACETAMINOPHEN AND HYDROCODONE BITARTRATE [Concomitant]
  23. BLEOMYCIN [Concomitant]
  24. CISPLATIN [Concomitant]
  25. ETOPOSIDE [Concomitant]
  26. LISINOPRIL [Concomitant]
  27. MAGNESIUM SULFATE [Concomitant]
  28. PENICILLIN [Concomitant]
  29. POTASSIUM CHLORIDE [Concomitant]
  30. VITAMIN E [Concomitant]
  31. WARFARIN SODIUM [Concomitant]

REACTIONS (10)
  - ALOPECIA [None]
  - BLOOD URINE PRESENT [None]
  - BONE PAIN [None]
  - CATHETER SITE INFECTION [None]
  - HYPOACUSIS [None]
  - INTERNATIONAL NORMALISED RATIO ABNORMAL [None]
  - MEDICATION ERROR [None]
  - PYREXIA [None]
  - RECTAL HAEMORRHAGE [None]
  - TINNITUS [None]
